FAERS Safety Report 12181509 (Version 1)
Quarter: 2016Q1

REPORT INFORMATION
  Report Type: Spontaneous
  Country: FR (occurrence: FR)
  Receive Date: 20160315
  Receipt Date: 20160315
  Transmission Date: 20160526
  Serious: Yes (Hospitalization)
  Sender: FDA-Public Use
  Company Number: FR-IPCA LABORATORIES LIMITED-IPC201603-000308

PATIENT
  Age: 51 Year
  Sex: Male

DRUGS (1)
  1. METFORMIN HYDROCHLORIDE. [Suspect]
     Active Substance: METFORMIN HYDROCHLORIDE
     Route: 048

REACTIONS (5)
  - Acute kidney injury [Unknown]
  - Overdose [Unknown]
  - Sepsis [Unknown]
  - Cirrhosis alcoholic [Unknown]
  - Lactic acidosis [Unknown]
